FAERS Safety Report 22284525 (Version 1)
Quarter: 2023Q2

REPORT INFORMATION
  Report Type: Spontaneous
  Country: US (occurrence: US)
  Receive Date: 20230504
  Receipt Date: 20230504
  Transmission Date: 20230722
  Serious: No
  Sender: FDA-Public Use
  Company Number: US-SANOFI-01599128

PATIENT
  Sex: Female

DRUGS (1)
  1. ALLEGRA-D 24 HOUR [Suspect]
     Active Substance: FEXOFENADINE HYDROCHLORIDE\PSEUDOEPHEDRINE HYDROCHLORIDE
     Indication: Nasal decongestion therapy
     Dosage: 1 TABLET; 1X
     Route: 065
     Dates: start: 20230501

REACTIONS (3)
  - Nausea [Unknown]
  - Dizziness [Unknown]
  - Initial insomnia [Unknown]

NARRATIVE: CASE EVENT DATE: 20230501
